FAERS Safety Report 6611505-7 (Version None)
Quarter: 2010Q1

REPORT INFORMATION
  Report Type: 
  Country: None (occurrence: None)
  Receive Date: 20100303
  Receipt Date: 20100218
  Transmission Date: 20100710
  Serious: Yes (Other)
  Sender: FDA-Public Use
  Company Number: PHHY2010FR10110

PATIENT
  Sex: Male

DRUGS (1)
  1. RASILEZ [Suspect]
     Dosage: 300 MG
     Dates: start: 20091207, end: 20091221

REACTIONS (5)
  - ARRHYTHMIA [None]
  - ATRIOVENTRICULAR EXTRASYSTOLES [None]
  - BLOOD PRESSURE ABNORMAL [None]
  - BUNDLE BRANCH BLOCK RIGHT [None]
  - DYSPNOEA [None]
